FAERS Safety Report 23411865 (Version 1)
Quarter: 2024Q1

REPORT INFORMATION
  Report Type: Spontaneous
  Country: US (occurrence: US)
  Receive Date: 20240117
  Receipt Date: 20240117
  Transmission Date: 20240410
  Serious: No
  Sender: FDA-Public Use
  Company Number: US-SK LIFE SCIENCE, INC-SKPVG-2023-000870

PATIENT

DRUGS (7)
  1. XCOPRI [Suspect]
     Active Substance: CENOBAMATE
     Indication: Temporal lobe epilepsy
     Dosage: UNK
     Route: 048
     Dates: start: 202210
  2. XCOPRI [Suspect]
     Active Substance: CENOBAMATE
     Dosage: 200 MILLIGRAM
     Route: 048
  3. XCOPRI [Suspect]
     Active Substance: CENOBAMATE
     Dosage: 300 MILLIGRAM
     Route: 048
     Dates: start: 202301
  4. XCOPRI [Suspect]
     Active Substance: CENOBAMATE
     Dosage: 400 MILLIGRAM
     Route: 048
  5. XCOPRI [Suspect]
     Active Substance: CENOBAMATE
     Dosage: 300 MILLIGRAM, QHS, NIGHTLY BEFORE BED (TWO 150MG TABLETS)
     Route: 048
  6. DIVALPROEX SODIUM [Concomitant]
     Active Substance: DIVALPROEX SODIUM
     Indication: Seizure
     Dosage: 125 MILLIGRAM, BID
     Route: 065
  7. DEPAKOTE [Concomitant]
     Active Substance: DIVALPROEX SODIUM
     Indication: Seizure
     Dosage: UNK
     Route: 065

REACTIONS (11)
  - Presyncope [Unknown]
  - Feeling abnormal [Unknown]
  - Paraesthesia [Unknown]
  - Initial insomnia [Recovered/Resolved]
  - Discomfort [Unknown]
  - Restless legs syndrome [Unknown]
  - Cognitive disorder [Unknown]
  - Aphasia [Unknown]
  - Dizziness [Unknown]
  - Memory impairment [Unknown]
  - Fatigue [Unknown]
